FAERS Safety Report 11172596 (Version 1)
Quarter: 2015Q2

REPORT INFORMATION
  Report Type: Spontaneous
  Country: US (occurrence: US)
  Receive Date: 20150608
  Receipt Date: 20150608
  Transmission Date: 20150821
  Serious: No
  Sender: FDA-Public Use
  Company Number: US-AMGEN-USASP2015048572

PATIENT
  Age: 65 Year
  Sex: Male
  Weight: 56.24 kg

DRUGS (11)
  1. PROCRIT [Suspect]
     Active Substance: ERYTHROPOIETIN
     Indication: ACQUIRED IMMUNODEFICIENCY SYNDROME
     Dosage: ALTERNATING DOSE AS 20,000 UNIT EVERY OTHER WEEK/40,000 UNIT EVERY OTHER WEEK
     Route: 058
     Dates: start: 2013
  2. CODEINE [Concomitant]
     Active Substance: CODEINE
     Indication: PAIN
     Dosage: 300 MG, 3-4 TIMES A DAY IF NEEDED
     Dates: start: 1995
  3. ISENTRESS [Concomitant]
     Active Substance: RALTEGRAVIR POTASSIUM
     Indication: ACQUIRED IMMUNODEFICIENCY SYNDROME
     Dosage: 100 MG, TWICE DAILY
     Dates: start: 2003
  4. MORPHINE [Concomitant]
     Active Substance: MORPHINE
     Dosage: 60 MG, DAILY
     Dates: start: 2000
  5. B12                                /00056201/ [Concomitant]
     Indication: SUPPLEMENTATION THERAPY
     Dosage: 1000 UNIT, QD
     Dates: start: 201503
  6. PROCRIT [Suspect]
     Active Substance: ERYTHROPOIETIN
     Indication: ANAEMIA
  7. MORPHINE [Concomitant]
     Active Substance: MORPHINE
     Indication: PAIN
     Dosage: 100 MG, TWICE DAILY
     Dates: start: 2000
  8. EPZICOM [Concomitant]
     Active Substance: ABACAVIR SULFATE\LAMIVUDINE
     Indication: ACQUIRED IMMUNODEFICIENCY SYNDROME
     Dosage: 600 MG, DAILY
     Dates: start: 2003
  9. PREZISTA [Concomitant]
     Active Substance: DARUNAVIR ETHANOLATE
     Indication: ACQUIRED IMMUNODEFICIENCY SYNDROME
     Dosage: 600 MG, TWICE DAILY
     Dates: start: 2003
  10. NORVIR [Concomitant]
     Active Substance: RITONAVIR
     Indication: ACQUIRED IMMUNODEFICIENCY SYNDROME
     Dosage: 100 MG, Q12
     Dates: start: 2003
  11. VITAMIN C [Concomitant]
     Active Substance: ASCORBIC ACID
     Indication: SUPPLEMENTATION THERAPY
     Dosage: 1000 UNIT, DAILY
     Dates: start: 201503

REACTIONS (4)
  - Incorrect product storage [Recovered/Resolved]
  - Fall [Recovered/Resolved]
  - Walking aid user [Not Recovered/Not Resolved]
  - Joint swelling [Not Recovered/Not Resolved]

NARRATIVE: CASE EVENT DATE: 201503
